FAERS Safety Report 23704023 (Version 1)
Quarter: 2024Q2

REPORT INFORMATION
  Report Type: Spontaneous
  Country: US (occurrence: US)
  Receive Date: 20240403
  Receipt Date: 20240403
  Transmission Date: 20240716
  Serious: No
  Sender: FDA-Public Use
  Company Number: US-BIOGEN-2024BI01245011

PATIENT
  Age: 40 Year
  Sex: Male
  Weight: 90.346 kg

DRUGS (13)
  1. SKYCLARYS [Suspect]
     Active Substance: OMAVELOXOLONE
     Indication: Friedreich^s ataxia
     Route: 050
     Dates: start: 20231208, end: 20240312
  2. SKYCLARYS [Suspect]
     Active Substance: OMAVELOXOLONE
     Route: 050
     Dates: start: 20240116
  3. CANNABIS SATIVA SUBSP. INDICA TOP [Concomitant]
     Active Substance: CANNABIS SATIVA SUBSP. INDICA TOP
     Indication: Neuralgia
     Dosage: TOPICAL AT NIGHT
     Route: 050
  4. BERBERINE [Concomitant]
     Active Substance: BERBERINE
     Indication: Product used for unknown indication
     Route: 050
  5. ACETYLCARNITINE [Concomitant]
     Active Substance: ACETYLCARNITINE
     Indication: Ataxia
     Dosage: 2 TABLETS BY MOUTH 2X DAILY
     Route: 050
  6. NORVASC [Concomitant]
     Active Substance: AMLODIPINE BESYLATE
     Indication: Product used for unknown indication
     Dosage: DAILY
     Route: 050
     Dates: start: 20220711
  7. LIORESAL [Concomitant]
     Active Substance: BACLOFEN
     Indication: Product used for unknown indication
     Dosage: 2 TABLET BY MOUTH AT NIGHT
     Route: 050
     Dates: start: 20240111
  8. VOLTAREN [Concomitant]
     Active Substance: DICLOFENAC SODIUM
     Indication: Product used for unknown indication
     Dosage: APPLY 2 G TOPICALLY 3X DAILY
     Route: 050
     Dates: start: 20210325
  9. NEURONTIN [Concomitant]
     Active Substance: GABAPENTIN
     Indication: Product used for unknown indication
     Dosage: 100 MG TOTAL BY MOUTH 5 TIMES DAILY
     Route: 050
  10. glutathione-L [Concomitant]
     Indication: Supplementation therapy
     Route: 050
  11. COZAAR [Concomitant]
     Active Substance: LOSARTAN POTASSIUM
     Indication: Product used for unknown indication
     Route: 050
     Dates: start: 20240103
  12. MOBIC [Concomitant]
     Active Substance: MELOXICAM
     Indication: Pain
     Route: 050
     Dates: start: 20231024
  13. PRILOSEC [Concomitant]
     Active Substance: OMEPRAZOLE MAGNESIUM
     Indication: Product used for unknown indication
     Dosage: 30 MINS BEFORE BREAKFAST
     Route: 050
     Dates: start: 20231024

REACTIONS (15)
  - Dystonia [Unknown]
  - Musculoskeletal stiffness [Unknown]
  - Poor quality sleep [Unknown]
  - Cough [Unknown]
  - Pain [Unknown]
  - Dyspnoea [Unknown]
  - Speech disorder [Unknown]
  - Hyporeflexia [Unknown]
  - Peripheral swelling [Unknown]
  - Neuropathy peripheral [Unknown]
  - Muscle spasticity [Unknown]
  - Alanine aminotransferase increased [Unknown]
  - Blood cholesterol increased [Unknown]
  - Muscle spasms [Unknown]
  - Hepatic enzyme increased [Unknown]

NARRATIVE: CASE EVENT DATE: 20240205
